FAERS Safety Report 20884707 (Version 1)
Quarter: 2022Q2

REPORT INFORMATION
  Report Type: Spontaneous
  Country: US (occurrence: US)
  Receive Date: 20220527
  Receipt Date: 20220527
  Transmission Date: 20220720
  Serious: Yes (Other)
  Sender: FDA-Public Use
  Company Number: US-PFIZER INC-2018063407

PATIENT
  Age: 58 Year
  Sex: Male
  Weight: 109 kg

DRUGS (13)
  1. LYRICA [Suspect]
     Active Substance: PREGABALIN
     Indication: Back pain
     Dosage: 150 MG, 3X/DAY
     Route: 048
     Dates: start: 20180207, end: 20180508
  2. LYRICA [Suspect]
     Active Substance: PREGABALIN
     Dosage: 300 MG, 3X/DAY (ONE 300 MG CAPSULE THREE TIMES A DAY)
     Route: 048
  3. TYLENOL [Concomitant]
     Active Substance: ACETAMINOPHEN
     Dosage: 650 MG, AS NEEDED (EVERY 4 HOURS)
     Route: 048
  4. ASPIRIN [Concomitant]
     Active Substance: ASPIRIN
     Dosage: 81 MG, DAILY
     Route: 048
  5. EXCEDRIN MIGRAINE [Concomitant]
     Active Substance: ACETAMINOPHEN\ASPIRIN\CAFFEINE
     Indication: Migraine
     Dosage: 2 DF, AS NEEDED  [EVERY 6 HOURS]
     Route: 048
  6. LIPITOR [Concomitant]
     Active Substance: ATORVASTATIN CALCIUM
     Dosage: 20 MG, 1X/DAY (BY MOUTH NIGHTLY)
     Route: 048
  7. PROBUPHINE [Concomitant]
     Active Substance: BUPRENORPHINE HYDROCHLORIDE
     Dosage: UNK (74.2 MG IMPL)
  8. MOTRIN [Concomitant]
     Active Substance: IBUPROFEN
     Dosage: 200 MG, 4X/DAY
     Route: 048
  9. TOPROL XL [Concomitant]
     Active Substance: METOPROLOL SUCCINATE
     Dosage: 12.5 MG, DAILY (0.5 TABLETS (12.5 MG TOTAL)
     Route: 048
  10. COMPAZINE [Concomitant]
     Active Substance: PROCHLORPERAZINE MALEATE
     Dosage: 10 MG, AS NEEDED (TAKE ONE TABLET BY MOUTH THREE TIMES DAILY)
     Route: 048
  11. MAXALT [Concomitant]
     Active Substance: RIZATRIPTAN BENZOATE
     Indication: Headache
     Dosage: 10 MG, AS NEEDED (TAKE 1 TAB ONCE AS NEEDED , MAY REPEAT EVERY 2 HOURS UP TO 2 TIMES IFNEED MAX 30 )
  12. PRINIVIL [Concomitant]
     Active Substance: LISINOPRIL
     Dosage: 10 MG, DAILY
     Route: 048
  13. ZESTRIL [Concomitant]
     Active Substance: LISINOPRIL
     Dosage: 10 MG, DAILY
     Route: 048

REACTIONS (3)
  - Cerebrovascular accident [Unknown]
  - Prescribed overdose [Unknown]
  - Intentional product misuse [Unknown]
